FAERS Safety Report 7772454-4 (Version None)
Quarter: 2011Q3

REPORT INFORMATION
  Report Type: 
  Country: None (occurrence: None)
  Receive Date: 20110922
  Receipt Date: 20110915
  Transmission Date: 20111222
  Serious: Yes (Hospitalization, Other)
  Sender: FDA-Public Use
  Company Number: PHHY2011JP64557

PATIENT
  Sex: Female

DRUGS (1)
  1. SYMMETREL [Suspect]
     Indication: PARKINSONISM
     Dosage: 100 MG/D IN TWO DIVIDED DOSES

REACTIONS (7)
  - HALLUCINATION, VISUAL [None]
  - CONVULSION [None]
  - STRESS CARDIOMYOPATHY [None]
  - MYOCARDIAL ISCHAEMIA [None]
  - DYSARTHRIA [None]
  - DISORIENTATION [None]
  - GAIT DISTURBANCE [None]
